FAERS Safety Report 8312631-7 (Version None)
Quarter: 2012Q2

REPORT INFORMATION
  Report Type: 
  Country: None (occurrence: None)
  Receive Date: 20120424
  Receipt Date: 20120416
  Transmission Date: 20120825
  Serious: Yes (Hospitalization)
  Sender: FDA-Public Use
  Company Number: ACO_29689_2012

PATIENT
  Age: 70 Year
  Sex: Female

DRUGS (1)
  1. AMPYRA [Suspect]
     Indication: PRODUCT USED FOR UNKNOWN INDICATION
     Dosage: 10 MG, BID
     Dates: start: 20110101

REACTIONS (4)
  - SPINAL COMPRESSION FRACTURE [None]
  - BALANCE DISORDER [None]
  - PAIN [None]
  - FALL [None]
